FAERS Safety Report 17228336 (Version 1)
Quarter: 2020Q1

REPORT INFORMATION
  Report Type: Spontaneous
  Country: GB (occurrence: GB)
  Receive Date: 20200103
  Receipt Date: 20200103
  Transmission Date: 20200409
  Serious: Yes (Other)
  Sender: FDA-Public Use
  Company Number: GB-TEVA-2019-GB-1160617

PATIENT
  Age: 34 Year
  Sex: Female
  Weight: 67 kg

DRUGS (4)
  1. SANDOZ LTD CO-AMOXICLAV [Concomitant]
     Active Substance: AMOXICILLIN\CLAVULANATE POTASSIUM
  2. CERAZETTE [Concomitant]
  3. METRONIDAZOLE. [Suspect]
     Active Substance: METRONIDAZOLE
     Indication: RECTAL HAEMORRHAGE
     Dosage: WITH FOOD, 1200 MG PER DAY
     Route: 048
     Dates: start: 20191122, end: 20191128
  4. QUINORIC [Concomitant]
     Active Substance: HYDROXYCHLOROQUINE SULFATE

REACTIONS (2)
  - Balance disorder [Recovering/Resolving]
  - Chromaturia [Unknown]

NARRATIVE: CASE EVENT DATE: 20191124
